FAERS Safety Report 16646605 (Version 2)
Quarter: 2019Q3

REPORT INFORMATION
  Report Type: Spontaneous
  Country: JP (occurrence: JP)
  Receive Date: 20190730
  Receipt Date: 20190805
  Transmission Date: 20191004
  Serious: Yes (Life-Threatening, Hospitalization, Other)
  Sender: FDA-Public Use
  Company Number: JP-ACCORD-149303

PATIENT
  Age: 57 Year
  Sex: Male

DRUGS (7)
  1. DOXORUBICIN [Suspect]
     Active Substance: DOXORUBICIN
     Indication: ADULT T-CELL LYMPHOMA/LEUKAEMIA
  2. ONCOVIN [Suspect]
     Active Substance: VINCRISTINE SULFATE
     Indication: ADULT T-CELL LYMPHOMA/LEUKAEMIA
  3. ETOPOSIDE. [Suspect]
     Active Substance: ETOPOSIDE
     Indication: ADULT T-CELL LYMPHOMA/LEUKAEMIA
  4. TACROLIMUS. [Suspect]
     Active Substance: TACROLIMUS
     Indication: IMMUNOSUPPRESSION
  5. CYCLOPHOSPHAMIDE/CYCLOPHOSPHAMIDE MONOHYDRATE [Suspect]
     Active Substance: CYCLOPHOSPHAMIDE
     Indication: ADULT T-CELL LYMPHOMA/LEUKAEMIA
  6. PREDNISOLONE. [Suspect]
     Active Substance: PREDNISOLONE
     Indication: ADULT T-CELL LYMPHOMA/LEUKAEMIA
  7. MYCOPHENOLIC ACID. [Suspect]
     Active Substance: MYCOPHENOLIC ACID
     Indication: IMMUNOSUPPRESSION

REACTIONS (3)
  - Pneumonitis [Recovering/Resolving]
  - Adult T-cell lymphoma/leukaemia [Recovered/Resolved]
  - Septic shock [Recovering/Resolving]
